FAERS Safety Report 4577062-4 (Version None)
Quarter: 2005Q1

REPORT INFORMATION
  Report Type: 
  Country: None (occurrence: None)
  Receive Date: 20050210
  Receipt Date: 20050131
  Transmission Date: 20050727
  Serious: Yes (Life-Threatening, Hospitalization)
  Sender: FDA-Public Use
  Company Number: MY-MERCK-0502MYS00001

PATIENT
  Sex: Female
  Weight: 54 kg

DRUGS (4)
  1. EMEND [Suspect]
     Indication: PROPHYLAXIS OF NAUSEA AND VOMITING
     Route: 048
     Dates: start: 20050101, end: 20050105
  2. CYCLOPHOSPHAMIDE [Suspect]
     Indication: CHEMOTHERAPY
     Route: 065
     Dates: start: 20050105
  3. EPIRUBICIN HYDROCHLORIDE [Suspect]
     Indication: CHEMOTHERAPY
     Route: 065
     Dates: start: 20050105
  4. EPIRUBICIN HYDROCHLORIDE [Concomitant]
     Route: 065

REACTIONS (6)
  - BRAIN OEDEMA [None]
  - CONVULSION [None]
  - DRUG INTERACTION [None]
  - INAPPROPRIATE ANTIDIURETIC HORMONE SECRETION [None]
  - LETHARGY [None]
  - OEDEMA [None]
